FAERS Safety Report 8127235-9 (Version None)
Quarter: 2012Q1

REPORT INFORMATION
  Report Type: 
  Country: None (occurrence: None)
  Receive Date: 20120210
  Receipt Date: 20120206
  Transmission Date: 20120608
  Serious: Yes (Hospitalization, Other)
  Sender: FDA-Public Use
  Company Number: US-PFIZER INC-2011151570

PATIENT
  Sex: Female

DRUGS (6)
  1. FLEXERIL [Concomitant]
     Indication: MUSCLE SPASMS
     Dosage: UNK
     Dates: start: 20030101
  2. CHANTIX [Suspect]
     Indication: SMOKING CESSATION THERAPY
     Dosage: UNK
     Route: 048
     Dates: start: 20070401, end: 20070401
  3. LAMICTAL [Concomitant]
     Indication: BIPOLAR DISORDER
     Dosage: UNK
     Dates: start: 20030101
  4. ALBUTEROL [Concomitant]
     Indication: ASTHMA
     Dosage: UNK
     Dates: start: 20030101
  5. LEXAPRO [Concomitant]
     Indication: BIPOLAR DISORDER
     Dosage: UNK
     Dates: start: 20030101
  6. ATIVAN [Concomitant]
     Indication: ANXIETY
     Dosage: UNK
     Dates: start: 20030101, end: 20100101

REACTIONS (1)
  - SUICIDE ATTEMPT [None]
